FAERS Safety Report 8431590-X (Version None)
Quarter: 2012Q2

REPORT INFORMATION
  Report Type: 
  Country: None (occurrence: None)
  Receive Date: 20120613
  Receipt Date: 20120605
  Transmission Date: 20120825
  Serious: Yes (Other)
  Sender: FDA-Public Use
  Company Number: US-US-EMD SERONO, INC.-7138132

PATIENT
  Sex: Female

DRUGS (1)
  1. REBIF [Suspect]
     Indication: MULTIPLE SCLEROSIS
     Dates: start: 20050101

REACTIONS (4)
  - MONOPLEGIA [None]
  - ROAD TRAFFIC ACCIDENT [None]
  - FOOT FRACTURE [None]
  - DEPRESSION [None]
